FAERS Safety Report 21396959 (Version 1)
Quarter: 2022Q3

REPORT INFORMATION
  Report Type: Report from Study
  Country: US (occurrence: US)
  Receive Date: 20220930
  Receipt Date: 20220930
  Transmission Date: 20221027
  Serious: Yes (Other)
  Sender: FDA-Public Use
  Company Number: US-JNJFOC-20220943934

PATIENT
  Age: 63 Year
  Sex: Female
  Weight: 101.06 kg

DRUGS (23)
  1. SIMPONI ARIA [Suspect]
     Active Substance: GOLIMUMAB
     Indication: Ankylosing spondylitis
     Dosage: 2 MG/KG
     Route: 041
     Dates: start: 20210201
  2. SIMPONI ARIA [Suspect]
     Active Substance: GOLIMUMAB
     Dosage: 2 MG/KG
     Route: 041
  3. SIMPONI ARIA [Suspect]
     Active Substance: GOLIMUMAB
     Route: 041
     Dates: start: 20220516
  4. TOPAMAX [Suspect]
     Active Substance: TOPIRAMATE
     Indication: Product used for unknown indication
     Route: 065
  5. DICLOFENAC [Suspect]
     Active Substance: DICLOFENAC
     Indication: Pain
  6. PENNSAID [Concomitant]
     Active Substance: DICLOFENAC SODIUM
     Dosage: 2 TIMES A DAY FOR 30 DAY
     Dates: start: 20201222
  7. LIDOCAINE [Concomitant]
     Active Substance: LIDOCAINE
     Dates: start: 20220309
  8. CLONAZEPAM [Concomitant]
     Active Substance: CLONAZEPAM
  9. PREDNISONE [Concomitant]
     Active Substance: PREDNISONE
  10. SULFASALAZINE [Concomitant]
     Active Substance: SULFASALAZINE
  11. ANASTROZOLE [Concomitant]
     Active Substance: ANASTROZOLE
  12. VITAMIN D3 [Concomitant]
     Active Substance: CHOLECALCIFEROL
  13. AMLODIPINE [Concomitant]
     Active Substance: AMLODIPINE BESYLATE
  14. GABAPENTIN [Concomitant]
     Active Substance: GABAPENTIN
  15. ESCITALOPRAM [Concomitant]
     Active Substance: ESCITALOPRAM OXALATE
  16. DIETARY SUPPLEMENT\HERBALS\MILK THISTLE [Concomitant]
     Active Substance: DIETARY SUPPLEMENT\HERBALS\MILK THISTLE
  17. CYCLOBENZAPRINE [Concomitant]
     Active Substance: CYCLOBENZAPRINE
     Dates: start: 20220803
  18. CYCLOBENZAPRINE ER [Concomitant]
     Dates: start: 20220809
  19. BUSPIRONE HYDROCHLORIDE [Concomitant]
     Active Substance: BUSPIRONE HYDROCHLORIDE
  20. POTASSIUM [Concomitant]
     Active Substance: POTASSIUM
  21. FUROSEMIDE [Concomitant]
     Active Substance: FUROSEMIDE
     Dates: start: 20220420
  22. FLEXERIL [Concomitant]
     Active Substance: CYCLOBENZAPRINE HYDROCHLORIDE
  23. ARMIX [PERINDOPRIL ERBUMINE] [Concomitant]

REACTIONS (9)
  - Breast cancer [Recovered/Resolved]
  - Oedema [Unknown]
  - Back pain [Unknown]
  - Arthralgia [Unknown]
  - Tachycardia [Unknown]
  - Weight increased [Unknown]
  - Breast pain [Not Recovered/Not Resolved]
  - Contusion [Unknown]
  - Hypertension [Unknown]

NARRATIVE: CASE EVENT DATE: 20220401
